FAERS Safety Report 11784183 (Version 2)
Quarter: 2018Q1

REPORT INFORMATION
  Report Type: Report from Study
  Country: None (occurrence: GB)
  Receive Date: 20151128
  Receipt Date: 20180222
  Transmission Date: 20180508
  Serious: Yes (Death)
  Sender: FDA-Public Use
  Company Number: GB-ABBVIE-15K-167-1508916-00

PATIENT
  Sex: Female

DRUGS (1)
  1. HUMIRA [Suspect]
     Active Substance: ADALIMUMAB
     Indication: RHEUMATOID ARTHRITIS
     Route: 058
     Dates: start: 20050302, end: 20100215

REACTIONS (4)
  - Asthenia [Fatal]
  - Disability [Fatal]
  - Malnutrition [Fatal]
  - Dysphagia [Fatal]
